FAERS Safety Report 8397836 (Version 2)
Quarter: 2014Q1

REPORT INFORMATION
  Report Type: Spontaneous
  Country: PL (occurrence: PL)
  Receive Date: 20120209
  Receipt Date: 20140303
  Transmission Date: 20141002
  Serious: Yes (Other)
  Sender: FDA-Public Use
  Company Number: PL-ROCHE-735051

PATIENT
  Age: 57 Year
  Sex: Male
  Weight: 91.5 kg

DRUGS (10)
  1. MIRCERA [Suspect]
     Indication: RENAL FAILURE CHRONIC
     Route: 065
     Dates: start: 20100512, end: 20100824
  2. MIRCERA [Suspect]
     Route: 065
     Dates: start: 20100825, end: 20100921
  3. MIRCERA [Suspect]
     Route: 065
     Dates: start: 20100825, end: 20100921
  4. MIRCERA [Suspect]
     Route: 065
     Dates: start: 20100922, end: 20101013
  5. BISOCARD [Concomitant]
     Indication: HYPERTENSION
     Dosage: FREQUENCY: 1X1
     Route: 048
  6. FUROSEMIDE [Concomitant]
     Indication: HYPERTENSION
     Dosage: FREQUENCY: 2X1
     Route: 048
  7. AMLOZEK [Concomitant]
     Indication: HYPERTENSION
     Dosage: FREQUENCY: 1X1
     Route: 048
  8. MILURIT [Concomitant]
     Indication: HYPERURICAEMIA
     Dosage: FREQUENCY: 1X1
     Route: 048
  9. POLPRAZOL [Concomitant]
     Dosage: FREQUENCY: 1X1
     Route: 048
  10. ACIDUM FOLICUM [Concomitant]
     Indication: RENAL FAILURE CHRONIC
     Dosage: FREQUENCY: 1X1
     Route: 065

REACTIONS (4)
  - Anaemia [Unknown]
  - Anaemia [Not Recovered/Not Resolved]
  - Rash [Recovered/Resolved]
  - Pruritus [Recovered/Resolved]
